FAERS Safety Report 17656867 (Version 2)
Quarter: 2020Q4

REPORT INFORMATION
  Report Type: Spontaneous
  Country: FR (occurrence: FR)
  Receive Date: 20200410
  Receipt Date: 20201109
  Transmission Date: 20210113
  Serious: Yes (Death, Hospitalization)
  Sender: FDA-Public Use
  Company Number: FR-PFIZER INC-2020140357

PATIENT
  Age: 72 Year
  Sex: Male
  Weight: 71 kg

DRUGS (1)
  1. VYNDAQEL [Suspect]
     Active Substance: TAFAMIDIS MEGLUMINE
     Indication: CARDIAC AMYLOIDOSIS
     Dosage: UNK
     Route: 048
     Dates: start: 20190109, end: 2020

REACTIONS (5)
  - Cardiac failure [Not Recovered/Not Resolved]
  - Death [Fatal]
  - Headache [Unknown]
  - Decreased appetite [Unknown]
  - Parosmia [Unknown]

NARRATIVE: CASE EVENT DATE: 2020
